FAERS Safety Report 13597906 (Version 1)
Quarter: 2017Q2

REPORT INFORMATION
  Report Type: Other
  Country: US (occurrence: US)
  Receive Date: 20170531
  Receipt Date: 20170531
  Transmission Date: 20170830
  Serious: Yes (Other)
  Sender: FDA-Public Use
  Company Number: US-B. BRAUN MEDICAL INC.-2021418

PATIENT
  Age: 23 Year
  Sex: Female

DRUGS (6)
  1. DEMECLOCYCLINE HYDROCHLORIDE. [Concomitant]
     Active Substance: DEMECLOCYCLINE HYDROCHLORIDE
  2. NOREPINEPHRINE. [Concomitant]
     Active Substance: NOREPINEPHRINE
  3. PHENYLEPHRINE [Concomitant]
     Active Substance: PHENYLEPHRINE\PHENYLEPHRINE HYDROCHLORIDE
  4. SODIUM CHLORIDE. [Suspect]
     Active Substance: SODIUM CHLORIDE
     Indication: HYPONATRAEMIA
     Route: 042
  5. VASOPRESSIN. [Suspect]
     Active Substance: VASOPRESSIN
     Route: 042
  6. PENTOBARBITAL. [Concomitant]
     Active Substance: PENTOBARBITAL

REACTIONS (1)
  - Diabetes insipidus [Recovered/Resolved]
